FAERS Safety Report 9339761 (Version 5)
Quarter: 2013Q4

REPORT INFORMATION
  Report Type: Spontaneous
  Country: JP (occurrence: JP)
  Receive Date: 20130610
  Receipt Date: 20131125
  Transmission Date: 20140711
  Serious: Yes (Life-Threatening, Hospitalization, Other)
  Sender: FDA-Public Use
  Company Number: PHHY2013JP057888

PATIENT
  Age: 83 Year
  Sex: Female

DRUGS (8)
  1. GLIVEC [Suspect]
     Indication: CHRONIC MYELOID LEUKAEMIA
     Dosage: 400 MG, DAILY
     Route: 048
     Dates: start: 20031007, end: 20130530
  2. GLIVEC [Suspect]
     Dosage: 400 MG, DAILY
     Route: 048
     Dates: start: 20130601
  3. OPALMON [Suspect]
     Indication: LUMBAR SPINAL STENOSIS
     Dosage: 15 UG, DAILY
     Route: 048
     Dates: start: 20120326, end: 20130528
  4. OPALMON [Suspect]
     Dosage: 15 UG, DAILY
     Route: 048
     Dates: start: 20130612
  5. CELECOX [Suspect]
     Indication: OSTEOARTHRITIS
     Dosage: 200 MG, DAILY
     Route: 048
     Dates: start: 20120802, end: 20130604
  6. LYRICA [Concomitant]
     Indication: LUMBAR SPINAL STENOSIS
     Dosage: 25 MG, UNK
     Route: 048
     Dates: start: 20130228
  7. NORVASC [Concomitant]
     Indication: HYPERTENSION
     Dosage: 05 MG, UNK
     Route: 048
     Dates: start: 20011029
  8. SHAKUYAKUKANZOTO [Concomitant]
     Indication: MUSCLE SPASMS
     Dosage: 2.5 MG, UNK
     Route: 048
     Dates: start: 20121221

REACTIONS (7)
  - Gastrointestinal perforation [Recovered/Resolved]
  - Gastric cancer [Recovered/Resolved]
  - Second primary malignancy [Unknown]
  - Abdominal pain [Unknown]
  - Peritonitis [Unknown]
  - Pyrexia [Recovered/Resolved]
  - Dizziness [Unknown]
